FAERS Safety Report 10026794 (Version 3)
Quarter: 2016Q3

REPORT INFORMATION
  Report Type: Spontaneous
  Country: US (occurrence: US)
  Receive Date: 20140321
  Receipt Date: 20160801
  Transmission Date: 20161108
  Serious: No
  Sender: FDA-Public Use
  Company Number: US-009507513-1403USA004870

PATIENT
  Age: 46 Year
  Sex: Male
  Weight: 60.77 kg

DRUGS (4)
  1. ZANTAC [Concomitant]
     Active Substance: RANITIDINE HYDROCHLORIDE
     Dosage: UNK
  2. PEGINTRON [Suspect]
     Active Substance: PEGINTERFERON ALFA-2B
     Indication: HEPATITIS C
     Dosage: REDIPEN, 0.5ML, Q7DAYS
     Route: 058
     Dates: start: 20140307
  3. REBETOL [Suspect]
     Active Substance: RIBAVIRIN
     Indication: HEPATITIS C
     Dosage: 400 MG, B.I.D. (TWICE A DAY)
     Route: 048
     Dates: start: 20140307
  4. PEGINTRON [Suspect]
     Active Substance: PEGINTERFERON ALFA-2B
     Dosage: UNK, QW
     Route: 058
     Dates: start: 20160307, end: 20160307

REACTIONS (8)
  - Dyspnoea [Unknown]
  - Weight decreased [Unknown]
  - Malaise [Unknown]
  - Back pain [Recovered/Resolved]
  - Influenza like illness [Unknown]
  - Chest discomfort [Unknown]
  - Influenza like illness [Recovered/Resolved]
  - Eating disorder [Unknown]

NARRATIVE: CASE EVENT DATE: 2014
